FAERS Safety Report 8138654-9 (Version None)
Quarter: 2012Q1

REPORT INFORMATION
  Report Type: 
  Country: None (occurrence: None)
  Receive Date: 20120215
  Receipt Date: 20120117
  Transmission Date: 20120608
  Serious: Yes (Other)
  Sender: FDA-Public Use
  Company Number: PHHY2012US008188

PATIENT
  Age: 47 Year
  Sex: Female

DRUGS (5)
  1. BACLOFEN [Concomitant]
  2. PHENYTOIN [Concomitant]
  3. CLONAZEPAM [Concomitant]
  4. MYCOPHENOLATE MOFETIL [Suspect]
     Indication: MYOCLONUS
  5. GABAPENTIN [Concomitant]

REACTIONS (6)
  - ASTHENIA [None]
  - CONDITION AGGRAVATED [None]
  - MYELITIS TRANSVERSE [None]
  - SENSORY LOSS [None]
  - FATIGUE [None]
  - MUSCLE SPASMS [None]
